FAERS Safety Report 18864135 (Version 2)
Quarter: 2021Q3

REPORT INFORMATION
  Report Type: Spontaneous
  Country: US (occurrence: US)
  Receive Date: 20210209
  Receipt Date: 20210811
  Transmission Date: 20211014
  Serious: No
  Sender: FDA-Public Use
  Company Number: US-SA-2021SA038040

PATIENT
  Sex: Male
  Weight: 126.98 kg

DRUGS (18)
  1. EPINEPHRINE. [Concomitant]
     Active Substance: EPINEPHRINE
  2. CBD OIL [Concomitant]
     Active Substance: CANNABIDIOL\HERBALS
  3. LORATADINE. [Concomitant]
     Active Substance: LORATADINE
  4. DIPHENHYDRAMINE. [Concomitant]
     Active Substance: DIPHENHYDRAMINE
     Indication: NAUSEA
  5. FABRAZYME [Suspect]
     Active Substance: AGALSIDASE BETA
     Indication: FABRY^S DISEASE
     Dosage: 135 MG, QOW
     Route: 042
     Dates: start: 20051109
  6. FABRAZYME [Suspect]
     Active Substance: AGALSIDASE BETA
     Indication: LIPIDOSIS
  7. NORMAL SALINE [Concomitant]
     Active Substance: SODIUM CHLORIDE
  8. DULOXETINE. [Concomitant]
     Active Substance: DULOXETINE
  9. VICODIN [Concomitant]
     Active Substance: ACETAMINOPHEN\HYDROCODONE BITARTRATE
  10. ACETAMINOPHEN. [Concomitant]
     Active Substance: ACETAMINOPHEN
  11. STERILE WATER [Concomitant]
     Active Substance: WATER
  12. HYDROXYZINE [Concomitant]
     Active Substance: HYDROXYZINE HYDROCHLORIDE
     Indication: NAUSEA
  13. BACTRIM [Concomitant]
     Active Substance: SULFAMETHOXAZOLE\TRIMETHOPRIM
     Dosage: UNK
  14. BUSPIRONE [Concomitant]
     Active Substance: BUSPIRONE HYDROCHLORIDE
  15. CARDURA [Concomitant]
     Active Substance: DOXAZOSIN MESYLATE
  16. CYMBALTA [Concomitant]
     Active Substance: DULOXETINE HYDROCHLORIDE
  17. ASPIRIN [ACETYLSALICYLIC ACID] [Concomitant]
     Active Substance: ASPIRIN
  18. MORPHINE [Concomitant]
     Active Substance: MORPHINE

REACTIONS (5)
  - Product dose omission issue [Unknown]
  - Nausea [Unknown]
  - Myalgia [Unknown]
  - Weight decreased [Unknown]
  - Back pain [Unknown]
